FAERS Safety Report 6064642-2 (Version None)
Quarter: 2009Q1

REPORT INFORMATION
  Report Type: 
  Country: None (occurrence: None)
  Receive Date: 20090204
  Receipt Date: 20080219
  Transmission Date: 20090719
  Serious: No
  Sender: FDA-Public Use
  Company Number: A0710538A

PATIENT
  Age: 75 Year
  Sex: Female

DRUGS (6)
  1. ARIXTRA [Suspect]
     Indication: DEEP VEIN THROMBOSIS
     Dosage: 7.5MG PER DAY
     Route: 058
     Dates: start: 20080130
  2. DIOVAN [Concomitant]
  3. LIPITOR [Concomitant]
  4. VICODIN [Concomitant]
  5. TEKTURNA [Concomitant]
  6. CHEMOTHERAPY [Concomitant]

REACTIONS (2)
  - CONTUSION [None]
  - PAIN [None]
